FAERS Safety Report 24867273 (Version 2)
Quarter: 2025Q1

REPORT INFORMATION
  Report Type: Report from Study
  Country: DE (occurrence: DE)
  Receive Date: 20250121
  Receipt Date: 20250205
  Transmission Date: 20250409
  Serious: Yes (Other)
  Sender: UCB
  Company Number: DE-UCBSA-2025002892

PATIENT
  Age: 56 Year
  Sex: Female
  Weight: 102 kg

DRUGS (2)
  1. BIMEKIZUMAB [Suspect]
     Active Substance: BIMEKIZUMAB
     Indication: Psoriasis
     Dosage: 320 MILLIGRAM, EV 4 WEEKS
     Dates: start: 20240521
  2. VIACORIND [Concomitant]
     Indication: Product used for unknown indication

REACTIONS (3)
  - Joint swelling [Unknown]
  - Cellulitis [Unknown]
  - Adverse event [Unknown]

NARRATIVE: CASE EVENT DATE: 20241205
